FAERS Safety Report 25412892 (Version 2)
Quarter: 2025Q3

REPORT INFORMATION
  Report Type: Spontaneous
  Country: JP (occurrence: JP)
  Receive Date: 20250609
  Receipt Date: 20250717
  Transmission Date: 20251021
  Serious: Yes (Other)
  Sender: MYLAN
  Company Number: JP-VIATRISJAPAN-2025M1047714AA

PATIENT
  Age: 8 Decade
  Sex: Female

DRUGS (8)
  1. LYRICA [Suspect]
     Active Substance: PREGABALIN
     Indication: Back pain
  2. OLANZAPINE [Suspect]
     Active Substance: OLANZAPINE
     Indication: Dementia
  3. ANHIBA [Suspect]
     Active Substance: ACETAMINOPHEN
     Indication: Back pain
  4. HERBALS [Suspect]
     Active Substance: HERBALS
     Indication: Dementia
  5. ARIPIPRAZOLE [Suspect]
     Active Substance: ARIPIPRAZOLE
     Indication: Dementia
  6. TRAMADOL [Suspect]
     Active Substance: TRAMADOL
     Indication: Back pain
  7. DONEPEZIL [Concomitant]
     Active Substance: DONEPEZIL
     Indication: Dementia
  8. QUETIAPINE [Concomitant]
     Active Substance: QUETIAPINE
     Indication: Dementia

REACTIONS (5)
  - Disease recurrence [Recovered/Resolved]
  - Dementia with Lewy bodies [Recovered/Resolved]
  - Psychotic disorder [Recovered/Resolved]
  - Drug ineffective [Unknown]
  - Off label use [Unknown]
